FAERS Safety Report 19051899 (Version 2)
Quarter: 2025Q1

REPORT INFORMATION
  Report Type: Spontaneous
  Country: US (occurrence: US)
  Receive Date: 20210324
  Receipt Date: 20250301
  Transmission Date: 20250409
  Serious: Yes (Other)
  Sender: ROCHE
  Company Number: US-ROCHE-2792351

PATIENT
  Sex: Female

DRUGS (1)
  1. RITUXAN [Suspect]
     Active Substance: RITUXIMAB
     Indication: Multiple sclerosis
     Dosage: STRENGTH 10 MG/ML
     Route: 042
     Dates: start: 201806

REACTIONS (4)
  - Multiple sclerosis relapse [Unknown]
  - Relapsing multiple sclerosis [Unknown]
  - Condition aggravated [Unknown]
  - Off label use [Unknown]
